FAERS Safety Report 18953692 (Version 1)
Quarter: 2021Q1

REPORT INFORMATION
  Report Type: Spontaneous
  Country: US (occurrence: US)
  Receive Date: 20210227
  Receipt Date: 20210227
  Transmission Date: 20210420
  Serious: Yes (Hospitalization)
  Sender: FDA-Public Use
  Company Number: None

PATIENT
  Age: 52 Year
  Sex: Female
  Weight: 97.8 kg

DRUGS (2)
  1. DEXAMETHASONE. [Suspect]
     Active Substance: DEXAMETHASONE
     Indication: STEM CELL THERAPY
     Dates: end: 20201105
  2. LENALIDOMIDE (CC?5013) [Suspect]
     Active Substance: LENALIDOMIDE
     Indication: STEM CELL THERAPY
     Dates: end: 20201104

REACTIONS (13)
  - Poor quality sleep [None]
  - Pulmonary mass [None]
  - Hypoxia [None]
  - Ventricular extrasystoles [None]
  - Malaise [None]
  - Pleuritic pain [None]
  - Orthostatic hypotension [None]
  - Catheter site pain [None]
  - Dizziness [None]
  - Nausea [None]
  - Asthenia [None]
  - Hypotension [None]
  - Presyncope [None]

NARRATIVE: CASE EVENT DATE: 20200201
